FAERS Safety Report 9482072 (Version 1)
Quarter: 2013Q3

REPORT INFORMATION
  Report Type: Spontaneous
  Country: GB (occurrence: GB)
  Receive Date: 20130828
  Receipt Date: 20130828
  Transmission Date: 20140515
  Serious: Yes (Death, Other)
  Sender: FDA-Public Use
  Company Number: GB-ROXANE LABORATORIES, INC.-2013-RO-01416RO

PATIENT
  Age: 48 Year
  Sex: Male

DRUGS (12)
  1. METHADONE [Suspect]
     Indication: CANCER PAIN
  2. METHADONE [Suspect]
  3. HYDROMORPHONE [Suspect]
     Indication: CANCER PAIN
  4. DEXAMETHASONE [Suspect]
     Indication: CANCER PAIN
     Dosage: 4 MG
  5. DEXAMETHASONE [Suspect]
  6. ALPRAZOLAM INTENSOL [ORAL SOLUTION (CONCENTRATE)] 1 MG/ML [Suspect]
     Indication: ANXIETY
  7. FLUOXETINE [Suspect]
     Dosage: 20 MG
  8. POTASSIUM CHLORIDE [Concomitant]
     Dosage: 20 MEQ
  9. BMX [Concomitant]
  10. ONDANSETRON [Concomitant]
     Route: 060
  11. LEVOTHYROXINE [Concomitant]
     Dosage: 25 MCG
  12. NYSTATIN/LIDOCAINE [Concomitant]
     Route: 048

REACTIONS (7)
  - Death [Fatal]
  - Toxicity to various agents [Unknown]
  - Respiratory depression [Recovered/Resolved]
  - Drug ineffective [Recovered/Resolved]
  - Cellulitis [Unknown]
  - Acidosis [Unknown]
  - Constipation [Unknown]
